FAERS Safety Report 5697823-8 (Version None)
Quarter: 2008Q2

REPORT INFORMATION
  Report Type: 
  Country: None (occurrence: None)
  Receive Date: 20080404
  Receipt Date: 20080404
  Transmission Date: 20081010
  Serious: Yes (Other)
  Sender: FDA-Public Use
  Company Number: None

PATIENT
  Age: 51 Year
  Sex: Male
  Weight: 83.9154 kg

DRUGS (2)
  1. LOVASTATIN [Suspect]
     Indication: BLOOD CHOLESTEROL
     Dosage: 1 DAILY PO
     Route: 048
     Dates: start: 20070414, end: 20080403
  2. LOVASTATIN [Suspect]
     Indication: LOW DENSITY LIPOPROTEIN
     Dosage: 1 DAILY PO
     Route: 048
     Dates: start: 20070414, end: 20080403

REACTIONS (4)
  - ALOPECIA [None]
  - ANXIETY [None]
  - HYPERKALAEMIA [None]
  - MADAROSIS [None]
